FAERS Safety Report 17530471 (Version 1)
Quarter: 2020Q1

REPORT INFORMATION
  Report Type: Spontaneous
  Country: FR (occurrence: FR)
  Receive Date: 20200312
  Receipt Date: 20200312
  Transmission Date: 20200409
  Serious: Yes (Life-Threatening)
  Sender: FDA-Public Use
  Company Number: FR-TEVA-2020-FR-1196842

PATIENT
  Age: 60 Year
  Sex: Female
  Weight: 82 kg

DRUGS (7)
  1. LOXEN L P 50 MG, G?LULE ? LIB?RATION PROLONG?E [Concomitant]
     Active Substance: NICARDIPINE HYDROCHLORIDE
     Dosage: 100 MILLIGRAM
     Route: 048
     Dates: end: 20200121
  2. NEBIVOLOL (CHLORHYDRATE DE) [Concomitant]
     Active Substance: NEBIVOLOL
     Dosage: 5 MILLIGRAM
     Route: 048
     Dates: end: 20200121
  3. DOXORUBICINE TEVA [Suspect]
     Active Substance: DOXORUBICIN
     Indication: LEIOMYOSARCOMA
     Dosage: 134 MILLIGRAM
     Route: 042
     Dates: start: 20190925, end: 20200108
  4. DACARBAZINE MEDAC [Suspect]
     Active Substance: DACARBAZINE
     Indication: LEIOMYOSARCOMA
     Dosage: 720 MILLIGRAM
     Route: 042
     Dates: start: 20190925, end: 20200108
  5. METFORMINE [Concomitant]
     Active Substance: METFORMIN HYDROCHLORIDE
     Dosage: 1000 MILLIGRAM
     Route: 048
  6. INNOHEP [Concomitant]
     Active Substance: TINZAPARIN SODIUM
     Indication: PULMONARY EMBOLISM
     Dosage: 15 IU
     Route: 058
     Dates: start: 201910
  7. LEVOTHYROX 125 MICROGRAMMES, COMPRIM? S?CABLE [Concomitant]
     Active Substance: LEVOTHYROXINE SODIUM
     Dosage: 125 MICROGRAMS
     Route: 048

REACTIONS (1)
  - Cardiac failure [Not Recovered/Not Resolved]

NARRATIVE: CASE EVENT DATE: 20200115
